FAERS Safety Report 9770554 (Version 1)
Quarter: 2013Q4

REPORT INFORMATION
  Report Type: Spontaneous
  Country: US (occurrence: US)
  Receive Date: 20131218
  Receipt Date: 20131218
  Transmission Date: 20140711
  Serious: Yes (Hospitalization)
  Sender: FDA-Public Use
  Company Number: US-GLAXOSMITHKLINE-A0931050A

PATIENT
  Age: 55 Year
  Sex: Male
  Weight: 100 kg

DRUGS (1)
  1. AVANDIA [Suspect]
     Indication: DIABETES MELLITUS
     Route: 048
     Dates: start: 2000, end: 2003

REACTIONS (8)
  - Cardiovascular disorder [Unknown]
  - Cardiac disorder [Unknown]
  - Sudden cardiac death [Unknown]
  - Embolic stroke [Unknown]
  - Coronary artery disease [Unknown]
  - Ventricular arrhythmia [Unknown]
  - Myocardial infarction [Unknown]
  - Congestive cardiomyopathy [Unknown]
